FAERS Safety Report 4415983-3 (Version None)
Quarter: 2004Q3

REPORT INFORMATION
  Report Type: 
  Country: None (occurrence: None)
  Receive Date: 20040802
  Receipt Date: 20040719
  Transmission Date: 20050211
  Serious: Yes (Death, Hospitalization)
  Sender: FDA-Public Use
  Company Number: 2004224757CH

PATIENT
  Sex: Male
  Weight: 75 kg

DRUGS (12)
  1. SOLU-MEDROL [Suspect]
     Indication: QUADRIPLEGIA
     Dosage: IV
     Route: 042
     Dates: start: 20040618, end: 20040624
  2. SOLU-CORTEF [Suspect]
     Indication: QUADRIPLEGIA
     Dosage: IV
     Route: 042
     Dates: start: 20040618, end: 20040624
  3. PROPOFOL [Suspect]
     Indication: SEDATIVE THERAPY
     Dosage: 175 MG, PER HOUR, IV
     Route: 042
     Dates: start: 20040619, end: 20040624
  4. ERITOMICINA(ERYTHROMYCIN) GRANULES [Suspect]
     Indication: PNEUMONIA
     Dosage: 100 MG, TID, IV
     Route: 042
     Dates: start: 20040620, end: 20040622
  5. CLAVUMOX(AMOXICILLIN, CLAVULANATE POTASSIUM) SUSPENSION, ORAL [Suspect]
     Indication: PNEUMONIA
     Dosage: 2.2 G, TID, IV
     Route: 042
     Dates: start: 20040619, end: 20040622
  6. LOMPERAL(OMEPRAZOLE) CAPSULE [Suspect]
     Dates: start: 20040601, end: 20040601
  7. LASIX [Suspect]
     Dates: start: 20040601, end: 20040601
  8. FENTANYL [Suspect]
     Dates: start: 20040601, end: 20040601
  9. ACETYLCYSTEIN NM PHARMA(ACETYLCYSTEINE) TABLET, EFFERVESCENT [Suspect]
     Dates: start: 20040601, end: 20040601
  10. NORADRENALINE(NOREPINEPHRINE) [Suspect]
     Dates: start: 20040601, end: 20040601
  11. INSULIN MC ATRAPID(INSULIN) [Suspect]
     Dates: start: 20040601, end: 20040601
  12. TAZOBAC (TAZOBACTAM SODIUM) [Concomitant]

REACTIONS (5)
  - BRAIN OEDEMA [None]
  - HYPERKALAEMIA [None]
  - PNEUMONIA ASPIRATION [None]
  - RENAL FAILURE [None]
  - RHABDOMYOLYSIS [None]
